FAERS Safety Report 10247012 (Version 1)
Quarter: 2014Q2

REPORT INFORMATION
  Report Type: Spontaneous
  Country: MY (occurrence: None)
  Receive Date: 20140617
  Receipt Date: 20140617
  Transmission Date: 20141212
  Serious: Yes (Hospitalization)
  Sender: FDA-Public Use
  Company Number: 2014CVI00001

PATIENT
  Age: 35 Year
  Sex: Female

DRUGS (3)
  1. CEFUROXIME (CEFUROXIME) [Suspect]
     Indication: PELVIC INFLAMMATORY DISEASE
  2. METRONIDAZOLE (METRONIDAZOLE) [Suspect]
     Indication: PELVIC INFLAMMATORY DISEASE
  3. AMPICILLIN [Concomitant]

REACTIONS (10)
  - Psychotic disorder [None]
  - Irritability [None]
  - Hallucination, auditory [None]
  - Affective disorder [None]
  - Delusion [None]
  - Insomnia [None]
  - Abnormal behaviour [None]
  - Anger [None]
  - Depressed mood [None]
  - Crying [None]
